FAERS Safety Report 6888040-4 (Version None)
Quarter: 2010Q3

REPORT INFORMATION
  Report Type: 
  Country: None (occurrence: None)
  Receive Date: 20100730
  Receipt Date: 20100720
  Transmission Date: 20110219
  Serious: Yes (Hospitalization)
  Sender: FDA-Public Use
  Company Number: B0667619A

PATIENT
  Age: 72 Year
  Sex: Male

DRUGS (2)
  1. ZYBAN [Suspect]
     Indication: PRODUCT USED FOR UNKNOWN INDICATION
  2. CHAMPIX [Concomitant]
     Dates: start: 20100601

REACTIONS (2)
  - APPARENT DEATH [None]
  - ILL-DEFINED DISORDER [None]
